FAERS Safety Report 10042968 (Version 2)
Quarter: 2014Q2

REPORT INFORMATION
  Report Type: Spontaneous
  Country: US (occurrence: US)
  Receive Date: 20140328
  Receipt Date: 20140424
  Transmission Date: 20141212
  Serious: No
  Sender: FDA-Public Use
  Company Number: US-AMGEN-USASP2014021331

PATIENT
  Age: 81 Year
  Sex: Female
  Weight: 51.7 kg

DRUGS (10)
  1. PROLIA [Suspect]
     Indication: PRODUCT USED FOR UNKNOWN INDICATION
     Dosage: 60 MG, Q6MO
     Route: 058
     Dates: start: 20121128
  2. PROLIA [Suspect]
     Dosage: 60 MG, Q6MO
     Route: 058
     Dates: start: 20121128
  3. PROLIA [Suspect]
     Dosage: 60 MG, Q6MO
     Route: 058
     Dates: start: 20121128
  4. BIOTIN [Concomitant]
     Dosage: 5000 UNK, QD
     Route: 048
     Dates: start: 2012
  5. FOLIC ACID [Concomitant]
     Dosage: 1 MG, QD
     Route: 048
  6. SELENIUM [Concomitant]
     Dosage: 200 MUG, QD
     Route: 048
  7. HERCEPTIN [Concomitant]
     Dosage: 440 MG, UNK
     Dates: end: 20120416
  8. VITAMIN B [Concomitant]
     Dosage: UNK UNK, QD
     Route: 048
  9. VITAMIN D                          /00107901/ [Concomitant]
     Dosage: UNK UNK, QD
     Route: 048
  10. VITAMIN E                          /00110501/ [Concomitant]
     Dosage: UNK UNK, QD
     Route: 048

REACTIONS (1)
  - Myalgia [Recovering/Resolving]
